FAERS Safety Report 9505643 (Version 1)
Quarter: 2013Q1

REPORT INFORMATION
  Report Type: Spontaneous
  Country: US (occurrence: None)
  Receive Date: 20130220
  Receipt Date: 20130220
  Transmission Date: 20140127
  Serious: No
  Sender: FDA-Public Use
  Company Number: 1000041103

PATIENT
  Age: 21 Year
  Sex: Female

DRUGS (2)
  1. VIIBRYD [Suspect]
     Indication: DEPRESSION
     Route: 048
     Dates: start: 201206, end: 2012
  2. VYVANSE (LISDEXAMFETAMINE MESILATE) (LISDEXAMFETAMINE MESILATE) [Concomitant]

REACTIONS (1)
  - Alopecia [None]
